FAERS Safety Report 10645281 (Version 1)
Quarter: 2014Q4

REPORT INFORMATION
  Report Type: Spontaneous
  Country: US (occurrence: None)
  Receive Date: 20141210
  Receipt Date: 20141210
  Transmission Date: 20150529
  Serious: Yes (Hospitalization)
  Sender: FDA-Public Use
  Company Number: None

PATIENT
  Age: 51 Year
  Sex: Male
  Weight: 45.61 kg

DRUGS (9)
  1. SENNA [Concomitant]
     Active Substance: SENNA LEAF\SENNOSIDES\SENNOSIDES A AND B
  2. JEVITY [Concomitant]
     Active Substance: DIETARY SUPPLEMENT
  3. DURAGESIC [Concomitant]
     Active Substance: FENTANYL
  4. ERIBULIN [Suspect]
     Active Substance: ERIBULIN
     Indication: CHEMOTHERAPY
     Dosage: 2.2MG, IVPUSH
     Route: 042
     Dates: start: 20141112
  5. AZITHROMYCIN [Concomitant]
     Active Substance: AZITHROMYCIN ANHYDROUS
  6. MORPHINE [Concomitant]
     Active Substance: MORPHINE
  7. CETUXIMAB [Suspect]
     Active Substance: CETUXIMAB
     Indication: HEAD AND NECK CANCER
     Route: 042
     Dates: start: 20141119
  8. ATOVAQUONE. [Concomitant]
     Active Substance: ATOVAQUONE
  9. BISACODYL. [Concomitant]
     Active Substance: BISACODYL

REACTIONS (5)
  - Dysphagia [None]
  - Haemolytic anaemia [None]
  - Disease progression [None]
  - Respiratory tract oedema [None]
  - Babesiosis [None]

NARRATIVE: CASE EVENT DATE: 20141201
